FAERS Safety Report 8117157-1 (Version None)
Quarter: 2012Q1

REPORT INFORMATION
  Report Type: 
  Country: None (occurrence: None)
  Receive Date: 20120206
  Receipt Date: 20120125
  Transmission Date: 20120608
  Serious: Yes (Other)
  Sender: FDA-Public Use
  Company Number: JP-ASTRAZENECA-2011SE15325

PATIENT
  Age: 34 Year
  Sex: Female
  Weight: 52 kg

DRUGS (4)
  1. SEROQUEL [Suspect]
     Route: 048
     Dates: start: 20060822, end: 20061017
  2. SEROQUEL [Suspect]
     Route: 048
     Dates: start: 20061018
  3. SERTRALINE HYDROCHLORIDE [Concomitant]
     Indication: ANXIETY DISORDER
     Dates: start: 20090904
  4. SEROQUEL [Suspect]
     Indication: ANXIETY DISORDER
     Route: 048
     Dates: start: 20060515, end: 20060821

REACTIONS (3)
  - OFF LABEL USE [None]
  - MATERNAL EXPOSURE DURING PREGNANCY [None]
  - THREATENED LABOUR [None]
